FAERS Safety Report 6174690-X (Version None)
Quarter: 2009Q2

REPORT INFORMATION
  Report Type: 
  Country: None (occurrence: None)
  Receive Date: 20090430
  Receipt Date: 20090427
  Transmission Date: 20091009
  Serious: Yes (Hospitalization)
  Sender: FDA-Public Use
  Company Number: US-GILEAD-2009-0021668

PATIENT
  Sex: Female
  Weight: 47.67 kg

DRUGS (22)
  1. LETAIRIS [Suspect]
     Indication: PULMONARY ARTERIAL HYPERTENSION
     Route: 048
     Dates: start: 20080305
  2. REMODULIN [Concomitant]
  3. OXYGEN [Concomitant]
  4. ASPIRIN [Concomitant]
  5. AMLODIPINE [Concomitant]
  6. SIMVASTATIN [Concomitant]
  7. DIOVAN [Concomitant]
  8. PLAVIX [Concomitant]
  9. NITRO-BID 2% [Concomitant]
  10. SYMBICORT [Concomitant]
  11. NIACIN [Concomitant]
  12. DETROL [Concomitant]
  13. CELEBREX [Concomitant]
  14. LEVOTHYROXINE SODIUM [Concomitant]
  15. PRILOSEC [Concomitant]
  16. VITAMIN E [Concomitant]
  17. VITAMIN B-12 [Concomitant]
  18. ASCORBIC ACID [Concomitant]
  19. FISH OIL [Concomitant]
  20. FIBER [Concomitant]
  21. MULTI-VITAMIN [Concomitant]
  22. CHOLINE [Concomitant]

REACTIONS (2)
  - BRONCHITIS [None]
  - VIRAL INFECTION [None]
